FAERS Safety Report 24973383 (Version 2)
Quarter: 2025Q2

REPORT INFORMATION
  Report Type: Spontaneous
  Country: JP (occurrence: JP)
  Receive Date: 20250216
  Receipt Date: 20250428
  Transmission Date: 20250717
  Serious: Yes (Other)
  Sender: GLAXOSMITHKLINE
  Company Number: JP-GSKNCCC-Case-02222850_AE-93833

PATIENT

DRUGS (2)
  1. SULTANOL [Suspect]
     Active Substance: ALBUTEROL SULFATE
     Indication: Asthma
     Dates: start: 2021
  2. Budeforu [Concomitant]
     Indication: Asthma
     Dosage: 160 ?G, BID, 1 INHALATION PER DOSE

REACTIONS (2)
  - Foreign body in throat [Recovered/Resolved]
  - Product quality issue [Unknown]

NARRATIVE: CASE EVENT DATE: 20250206
